FAERS Safety Report 5585645-8 (Version None)
Quarter: 2007Q4

REPORT INFORMATION
  Report Type: 
  Country: None (occurrence: None)
  Receive Date: 20071203
  Receipt Date: 20061018
  Transmission Date: 20080405
  Serious: Yes (Other)
  Sender: FDA-Public Use
  Company Number: 2006100670

PATIENT
  Age: 78 Year
  Sex: Male
  Weight: 53.0709 kg

DRUGS (7)
  1. ZYVOX [Suspect]
     Indication: EAR INFECTION
     Dosage: 1200 MG (1200 MG,2 IN 1 D),ORAL
     Route: 048
     Dates: start: 20060729, end: 20060818
  2. ZYVOX [Suspect]
     Indication: OSTEOMYELITIS
     Dosage: 1200 MG (1200 MG,2 IN 1 D),ORAL
     Route: 048
     Dates: start: 20060729, end: 20060818
  3. INSULIN [Concomitant]
  4. TARKA [Concomitant]
  5. PENTOXIFYLLINE [Concomitant]
  6. ALL OTHER THERAPEUTIC PRODUCTS (ALL OTHER THERAPEUTIC PRODUCTS) [Concomitant]
  7. ACTOS [Concomitant]

REACTIONS (1)
  - VISUAL DISTURBANCE [None]
